FAERS Safety Report 20113049 (Version 1)
Quarter: 2021Q4

REPORT INFORMATION
  Report Type: Spontaneous
  Country: US (occurrence: None)
  Receive Date: 20211124
  Receipt Date: 20211124
  Transmission Date: 20220304
  Serious: Yes (Disabling)
  Sender: FDA-Public Use
  Company Number: None

PATIENT
  Age: 36 Year
  Sex: Male
  Weight: 96.75 kg

DRUGS (1)
  1. ZYPREXA [Suspect]
     Active Substance: OLANZAPINE
     Indication: Schizophrenia
     Route: 048
     Dates: start: 20190201

REACTIONS (5)
  - Coordination abnormal [None]
  - Dysgraphia [None]
  - Vision blurred [None]
  - Pain [None]
  - Injury [None]

NARRATIVE: CASE EVENT DATE: 20190201
